FAERS Safety Report 6115409-8 (Version None)
Quarter: 2009Q1

REPORT INFORMATION
  Report Type: 
  Country: None (occurrence: None)
  Receive Date: 20090313
  Receipt Date: 20090304
  Transmission Date: 20090719
  Serious: Yes (Hospitalization)
  Sender: FDA-Public Use
  Company Number: JP-BRISTOL-MYERS SQUIBB COMPANY-14540413

PATIENT
  Age: 62 Year
  Sex: Female

DRUGS (2)
  1. ABILIFY [Suspect]
     Indication: SCHIZOPHRENIA
     Dosage: 12MG/D: 28OCT08 - 19DEC08 (53DAYS) 24MG/D: 20DEC08 - 5JAN09(17DAYS) 30MG/D: 06JAN09 -(ONGOING)
     Route: 048
     Dates: start: 20081028
  2. FUROSEMIDE [Concomitant]
     Dosage: TABLET FORM ONGOING

REACTIONS (2)
  - BRAIN NATRIURETIC PEPTIDE INCREASED [None]
  - OEDEMA PERIPHERAL [None]
